FAERS Safety Report 6420491-4 (Version None)
Quarter: 2009Q4

REPORT INFORMATION
  Report Type: 
  Country: None (occurrence: None)
  Receive Date: 20091021
  Receipt Date: 20090723
  Transmission Date: 20100525
  Serious: No
  Sender: FDA-Public Use
  Company Number: SPV1-2009-01538

PATIENT
  Age: 29 Year
  Sex: Male

DRUGS (1)
  1. VYVANSE [Suspect]
     Indication: DRUG USE FOR UNKNOWN INDICATION
     Dosage: 1X/DAY:QD, ORAL
     Route: 048

REACTIONS (2)
  - FEELING ABNORMAL [None]
  - SELF-INJURIOUS IDEATION [None]
